FAERS Safety Report 4517670-X (Version None)
Quarter: 2004Q4

REPORT INFORMATION
  Report Type: 
  Country: None (occurrence: None)
  Receive Date: 20041202
  Receipt Date: 20041202
  Transmission Date: 20050328
  Serious: Yes (Death)
  Sender: FDA-Public Use
  Company Number: None

PATIENT
  Age: 52 Year
  Sex: Male
  Weight: 92.5338 kg

DRUGS (7)
  1. CLOZAPINE 25MG AND 100MG IVAX [Suspect]
     Indication: SCHIZOAFFECTIVE DISORDER
     Dosage: P.O. TITRATION (STANDARD)
     Route: 048
     Dates: start: 20041005, end: 20041011
  2. DEPAKOTE ER [Concomitant]
  3. RISPERDAL [Concomitant]
  4. CLONAZEPAM [Concomitant]
  5. HYDROCHLOROTHIAZIDE [Concomitant]
  6. CLONIDINE [Concomitant]
  7. ZYPREXA [Concomitant]

REACTIONS (6)
  - BLOOD PRESSURE SYSTOLIC INCREASED [None]
  - CARDIO-RESPIRATORY ARREST [None]
  - EXCORIATION [None]
  - FALL [None]
  - PULSE ABSENT [None]
  - SWELLING [None]
